FAERS Safety Report 7763132-6 (Version None)
Quarter: 2011Q3

REPORT INFORMATION
  Report Type: 
  Country: None (occurrence: None)
  Receive Date: 20110920
  Receipt Date: 20110905
  Transmission Date: 20111222
  Serious: Yes (Hospitalization)
  Sender: FDA-Public Use
  Company Number: PHHY2011AR79227

PATIENT
  Sex: Male

DRUGS (2)
  1. EXFORGE [Suspect]
     Dosage: UNK UKN, UNK
     Dates: start: 20110904
  2. EXFORGE [Suspect]
     Indication: BLOOD PRESSURE
     Dosage: 1 DF (320/5 MG) DAILY
     Dates: start: 20090501, end: 20110831

REACTIONS (1)
  - CHOLELITHIASIS [None]
